FAERS Safety Report 26184675 (Version 1)
Quarter: 2025Q4

REPORT INFORMATION
  Report Type: Spontaneous
  Country: US (occurrence: US)
  Receive Date: 20251222
  Receipt Date: 20251222
  Transmission Date: 20260118
  Serious: No
  Sender: JOHNSON AND JOHNSON
  Company Number: US-JNJFOC-20251218701

PATIENT

DRUGS (2)
  1. IMAAVY [Suspect]
     Active Substance: NIPOCALIMAB-AAHU
     Indication: Myasthenia gravis
     Route: 042
  2. IMAAVY [Suspect]
     Active Substance: NIPOCALIMAB-AAHU
     Route: 042

REACTIONS (2)
  - Product storage error [Unknown]
  - Product dose omission issue [Unknown]
